FAERS Safety Report 12836866 (Version 1)
Quarter: 2016Q4

REPORT INFORMATION
  Report Type: Spontaneous
  Country: FR (occurrence: FR)
  Receive Date: 20161011
  Receipt Date: 20161011
  Transmission Date: 20170207
  Serious: Yes (Hospitalization)
  Sender: FDA-Public Use
  Company Number: FR-ABBVIE-16P-056-1749551-00

PATIENT
  Age: 26 Year
  Sex: Female

DRUGS (14)
  1. TRANXENE T-TAB [Suspect]
     Active Substance: CLORAZEPATE DIPOTASSIUM
     Indication: SUICIDE ATTEMPT
     Route: 048
  2. LEPTICUR (TROPATEPINE HYDROCHLORIDE) [Suspect]
     Active Substance: TROPATEPINE HYDROCHLORIDE
     Route: 048
     Dates: start: 20160227, end: 20160227
  3. LOXAPAC (LOXAPINE SUCCINATE) [Suspect]
     Active Substance: LOXAPINE SUCCINATE
     Indication: SUICIDE ATTEMPT
     Dosage: AT BEDTIME
     Route: 048
  4. MIRTAZAPINE (MIRTAZAPINE) [Concomitant]
     Active Substance: MIRTAZAPINE
     Indication: PRODUCT USED FOR UNKNOWN INDICATION
     Route: 065
  5. DEPAKOTE [Suspect]
     Active Substance: DIVALPROEX SODIUM
     Indication: SUICIDE ATTEMPT
     Route: 048
  6. DEPAKOTE [Suspect]
     Active Substance: DIVALPROEX SODIUM
     Route: 048
     Dates: start: 20160227, end: 20160227
  7. LOXAPAC (LOXAPINE SUCCINATE) [Suspect]
     Active Substance: LOXAPINE SUCCINATE
     Route: 048
     Dates: start: 20160227, end: 20160227
  8. PARKINANE (TRIHEXYPHENIDYL HYDROCHLORIDE) [Concomitant]
     Indication: PRODUCT USED FOR UNKNOWN INDICATION
     Route: 065
  9. LEPTICUR (TROPATEPINE HYDROCHLORIDE) [Suspect]
     Active Substance: TROPATEPINE HYDROCHLORIDE
     Indication: SUICIDE ATTEMPT
     Route: 048
  10. IMOVANE [Concomitant]
     Active Substance: ZOPICLONE
     Indication: PRODUCT USED FOR UNKNOWN INDICATION
     Route: 065
  11. LOXAPAC (LOXAPINE SUCCINATE) [Suspect]
     Active Substance: LOXAPINE SUCCINATE
     Route: 048
     Dates: start: 20160227, end: 20160227
  12. TRANXENE T-TAB [Suspect]
     Active Substance: CLORAZEPATE DIPOTASSIUM
     Route: 048
     Dates: start: 20160227, end: 20160227
  13. LOXAPAC (LOXAPINE SUCCINATE) [Suspect]
     Active Substance: LOXAPINE SUCCINATE
     Route: 048
     Dates: start: 20160227, end: 20160227
  14. THERALENE (ALIMEMAZINE TARTRATE) [Concomitant]
     Indication: PRODUCT USED FOR UNKNOWN INDICATION
     Route: 065

REACTIONS (3)
  - Toxicity to various agents [Recovered/Resolved]
  - Somnolence [Recovered/Resolved]
  - Confusional state [Recovered/Resolved]

NARRATIVE: CASE EVENT DATE: 20160227
